FAERS Safety Report 19381670 (Version 1)
Quarter: 2021Q2

REPORT INFORMATION
  Report Type: Spontaneous
  Country: GB (occurrence: GB)
  Receive Date: 20210607
  Receipt Date: 20210607
  Transmission Date: 20210717
  Serious: Yes (Disabling)
  Sender: FDA-Public Use
  Company Number: GB-TEVA-2021-XI-1918482

PATIENT
  Age: 24 Year
  Sex: Male

DRUGS (1)
  1. MIRTAZAPINE. [Suspect]
     Active Substance: MIRTAZAPINE
     Indication: ANTIDEPRESSANT THERAPY
     Dates: start: 2014, end: 2015

REACTIONS (7)
  - Weight increased [Unknown]
  - Confusional state [Unknown]
  - Breathing-related sleep disorder [Unknown]
  - Intrusive thoughts [Unknown]
  - Aggression [Unknown]
  - Libido decreased [Unknown]
  - Nightmare [Unknown]
